FAERS Safety Report 9386720 (Version 2)
Quarter: 2013Q3

REPORT INFORMATION
  Report Type: Spontaneous
  Country: US (occurrence: US)
  Receive Date: 20130708
  Receipt Date: 20130827
  Transmission Date: 20140515
  Serious: No
  Sender: FDA-Public Use
  Company Number: US-PFIZER INC-2013176732

PATIENT
  Age: 56 Year
  Sex: Female
  Weight: 76.19 kg

DRUGS (8)
  1. SUTENT [Suspect]
     Indication: METASTATIC RENAL CELL CARCINOMA
     Dosage: 50 MG, 1X/DAY
     Dates: start: 20130607, end: 20130812
  2. NEXAVAR [Suspect]
     Indication: METASTATIC RENAL CELL CARCINOMA
     Dosage: UNK
     Dates: end: 20130606
  3. ZOFRAN [Concomitant]
     Dosage: UNK
  4. MS CONTIN [Concomitant]
     Dosage: UNK
  5. PERCOCET [Concomitant]
     Dosage: UNK
  6. ZANTAC [Concomitant]
     Dosage: UNK
  7. IRON [Concomitant]
     Dosage: UNK
  8. LAETRILE [Concomitant]

REACTIONS (13)
  - Dysgeusia [Not Recovered/Not Resolved]
  - Glossodynia [Not Recovered/Not Resolved]
  - Rash [Not Recovered/Not Resolved]
  - Decreased appetite [Not Recovered/Not Resolved]
  - Dry skin [Not Recovered/Not Resolved]
  - Nausea [Not Recovered/Not Resolved]
  - Headache [Unknown]
  - Fatigue [Unknown]
  - Constipation [Unknown]
  - Stomatitis [Not Recovered/Not Resolved]
  - Vomiting [Unknown]
  - Disease progression [Unknown]
  - Metastatic renal cell carcinoma [Unknown]
